FAERS Safety Report 4622421-4 (Version None)
Quarter: 2005Q1

REPORT INFORMATION
  Report Type: 
  Country: None (occurrence: None)
  Receive Date: 20050324
  Receipt Date: 20050324
  Transmission Date: 20050727
  Serious: Yes (Other)
  Sender: FDA-Public Use
  Company Number: None

PATIENT
  Age: 21 Year
  Sex: Female

DRUGS (2)
  1. MURINE EAR WAX REMOVAL SYSTEM + BULB SYRINGE (CARBAMIDE PEROXIDE 6.5%) [Suspect]
     Dosage: 6 DROPS IN LEFT EAR
     Dates: start: 20030414
  2. MURINE EAR WAX REMOVAL SYSTEM + BULB SYRINGE (CARBAMIDE PEROXIDE 6.5%) [Suspect]

REACTIONS (2)
  - EAR PAIN [None]
  - INSTILLATION SITE PAIN [None]
